FAERS Safety Report 13894128 (Version 1)
Quarter: 2017Q3

REPORT INFORMATION
  Report Type: Spontaneous
  Country: US (occurrence: US)
  Receive Date: 20170816
  Receipt Date: 20170816
  Transmission Date: 20171127
  Serious: No
  Sender: FDA-Public Use
  Company Number: None

PATIENT
  Age: 57 Year
  Sex: Female
  Weight: 59.4 kg

DRUGS (5)
  1. RESTASIS [Suspect]
     Active Substance: CYCLOSPORINE
     Indication: DRY EYE
     Route: 047
     Dates: start: 20170601, end: 20170801
  2. FISH OIL [Concomitant]
     Active Substance: FISH OIL
  3. MULTI VITAMIN [Concomitant]
     Active Substance: VITAMINS
  4. ESTRADIOL. [Concomitant]
     Active Substance: ESTRADIOL
  5. PAXIL [Concomitant]
     Active Substance: PAROXETINE HYDROCHLORIDE

REACTIONS (2)
  - Movement disorder [None]
  - Myalgia [None]

NARRATIVE: CASE EVENT DATE: 20170801
